FAERS Safety Report 18016584 (Version 1)
Quarter: 2020Q3

REPORT INFORMATION
  Report Type: Report from Study
  Country: CA (occurrence: CA)
  Receive Date: 20200713
  Receipt Date: 20200713
  Transmission Date: 20201103
  Serious: Yes (Other)
  Sender: FDA-Public Use
  Company Number: PHHY2018CA004029

PATIENT
  Age: 40 Year
  Sex: Female

DRUGS (1)
  1. GILENYA [Suspect]
     Active Substance: FINGOLIMOD HYDROCHLORIDE
     Indication: PRODUCT USED FOR UNKNOWN INDICATION
     Dosage: UNK
     Route: 048
     Dates: start: 20180501

REACTIONS (5)
  - Dizziness [Recovered/Resolved]
  - Gastrointestinal disorder [Unknown]
  - Dyspnoea [Unknown]
  - Arrhythmia [Unknown]
  - Hangover [Unknown]

NARRATIVE: CASE EVENT DATE: 20180501
